FAERS Safety Report 11331608 (Version 1)
Quarter: 2015Q3

REPORT INFORMATION
  Report Type: Spontaneous
  Country: JP (occurrence: JP)
  Receive Date: 20150803
  Receipt Date: 20150803
  Transmission Date: 20151125
  Serious: Yes (Life-Threatening, Hospitalization)
  Sender: FDA-Public Use
  Company Number: JP-MYLANLABS-2015M1025761

PATIENT

DRUGS (18)
  1. RISPERIDONE. [Suspect]
     Active Substance: RISPERIDONE
     Dosage: 24MG
     Route: 065
  2. PHENOBARBITAL. [Suspect]
     Active Substance: PHENOBARBITAL
     Route: 065
  3. FLUNITRAZEPAM [Suspect]
     Active Substance: FLUNITRAZEPAM
     Indication: PRODUCT USED FOR UNKNOWN INDICATION
     Dosage: 16MG
     Route: 065
  4. NITRAZEPAM [Suspect]
     Active Substance: NITRAZEPAM
     Route: 065
  5. BIPERIDEN [Suspect]
     Active Substance: BIPERIDEN
     Route: 065
  6. LEVOMEPROMAZINE [Suspect]
     Active Substance: LEVOMEPROMAZINE
     Indication: PRODUCT USED FOR UNKNOWN INDICATION
     Dosage: 200MG
     Route: 065
  7. FLUNITRAZEPAM [Suspect]
     Active Substance: FLUNITRAZEPAM
     Route: 065
  8. BIPERIDEN [Suspect]
     Active Substance: BIPERIDEN
     Indication: PRODUCT USED FOR UNKNOWN INDICATION
     Dosage: 4MG
     Route: 065
  9. MIANSERIN [Suspect]
     Active Substance: MIANSERIN
     Indication: PRODUCT USED FOR UNKNOWN INDICATION
     Dosage: 120MG
     Route: 065
  10. PROMETHAZINE [Suspect]
     Active Substance: PROMETHAZINE\PROMETHAZINE HYDROCHLORIDE
     Indication: PRODUCT USED FOR UNKNOWN INDICATION
     Dosage: 100MG
     Route: 065
  11. PROMETHAZINE [Suspect]
     Active Substance: PROMETHAZINE\PROMETHAZINE HYDROCHLORIDE
     Route: 065
  12. LEVOMEPROMAZINE [Suspect]
     Active Substance: LEVOMEPROMAZINE
     Route: 065
  13. RISPERIDONE. [Suspect]
     Active Substance: RISPERIDONE
     Indication: SCHIZOPHRENIA
     Dosage: UNK
     Route: 065
  14. PHENOBARBITAL. [Suspect]
     Active Substance: PHENOBARBITAL
     Indication: PRODUCT USED FOR UNKNOWN INDICATION
     Dosage: 280MG
     Route: 065
  15. MIANSERIN [Suspect]
     Active Substance: MIANSERIN
     Route: 065
  16. CHLORPROMAZINE. [Suspect]
     Active Substance: CHLORPROMAZINE
     Indication: PRODUCT USED FOR UNKNOWN INDICATION
     Dosage: 150MG
     Route: 065
  17. CHLORPROMAZINE. [Suspect]
     Active Substance: CHLORPROMAZINE
     Route: 065
  18. NITRAZEPAM [Suspect]
     Active Substance: NITRAZEPAM
     Indication: PRODUCT USED FOR UNKNOWN INDICATION
     Dosage: 40MG
     Route: 065

REACTIONS (4)
  - Overdose [Recovered/Resolved]
  - Neuroleptic malignant syndrome [Recovered/Resolved]
  - Hyperosmolar hyperglycaemic state [Recovered/Resolved]
  - Rhabdomyolysis [Recovered/Resolved]
